FAERS Safety Report 13006757 (Version 1)
Quarter: 2016Q4

REPORT INFORMATION
  Report Type: Spontaneous
  Country: PL (occurrence: PL)
  Receive Date: 20161207
  Receipt Date: 20161207
  Transmission Date: 20170207
  Serious: Yes (Hospitalization)
  Sender: FDA-Public Use
  Company Number: PL-TEVA-717595ACC

PATIENT
  Age: 63 Year
  Sex: Female
  Weight: 60 kg

DRUGS (3)
  1. VINCRISTIN [Suspect]
     Active Substance: VINCRISTINE
     Indication: LYMPHOMA
     Dosage: DOSE 1,4; DOSE UNIT NOT SPECIFIED
     Route: 042
     Dates: start: 20160601, end: 20160601
  2. ADRIAMYCIN [Suspect]
     Active Substance: DOXORUBICIN HYDROCHLORIDE
     Indication: LYMPHOMA
     Dosage: DOSE 50; DOSE UNIT NOT SPECIFIED
     Route: 042
     Dates: start: 20160601, end: 20160601
  3. CYCLOPHOSPHAMID [Suspect]
     Active Substance: CYCLOPHOSPHAMIDE
     Indication: LYMPHOMA
     Dosage: DOSE 750; DOSE UNIT NOT SPECIFIED
     Route: 042
     Dates: start: 20160601, end: 20160601

REACTIONS (2)
  - Anaemia [Recovered/Resolved]
  - Neutropenia [Recovered/Resolved]

NARRATIVE: CASE EVENT DATE: 20160609
